FAERS Safety Report 6975674-1 (Version None)
Quarter: 2010Q3

REPORT INFORMATION
  Report Type: 
  Country: None (occurrence: None)
  Receive Date: 20100910
  Receipt Date: 20100827
  Transmission Date: 20110219
  Serious: Yes (Other)
  Sender: FDA-Public Use
  Company Number: AU-RANBAXY-2010RR-37646

PATIENT
  Age: 31 Year
  Sex: Female

DRUGS (6)
  1. AMISULPRIDE [Suspect]
     Indication: BIPOLAR DISORDER
     Dosage: 200 MG, BID
  2. AMISULPRIDE [Suspect]
     Dosage: 400 MG, BID
  3. QUETIAPINE [Suspect]
     Indication: BIPOLAR DISORDER
     Dosage: 600 MG, UNK
  4. RISPERIDONE [Suspect]
  5. LITHIUM CARBONATE [Suspect]
     Indication: BIPOLAR DISORDER
     Dosage: 450 MG, BID
  6. VALPROIC ACID [Concomitant]

REACTIONS (2)
  - DRUG INTERACTION [None]
  - NEUROLEPTIC MALIGNANT SYNDROME [None]
